FAERS Safety Report 17013484 (Version 1)
Quarter: 2019Q4

REPORT INFORMATION
  Report Type: Spontaneous
  Country: AU (occurrence: AU)
  Receive Date: 20191110
  Receipt Date: 20191110
  Transmission Date: 20200122
  Serious: Yes (Other)
  Sender: FDA-Public Use
  Company Number: NVSC2019AU023762

PATIENT
  Age: 62 Year
  Sex: Male

DRUGS (4)
  1. NAPROXEN. [Suspect]
     Active Substance: NAPROXEN
     Indication: PRODUCT USED FOR UNKNOWN INDICATION
     Route: 065
  2. DICLOFENAC [Suspect]
     Active Substance: DICLOFENAC
     Indication: PRODUCT USED FOR UNKNOWN INDICATION
     Route: 065
  3. GILENYA [Suspect]
     Active Substance: FINGOLIMOD HYDROCHLORIDE
     Indication: PRODUCT USED FOR UNKNOWN INDICATION
     Dosage: UNK
     Route: 065
  4. ENALAPRIL MALEATE. [Suspect]
     Active Substance: ENALAPRIL MALEATE
     Indication: PRODUCT USED FOR UNKNOWN INDICATION
     Route: 065

REACTIONS (14)
  - Gastric ulcer [Unknown]
  - Nasopharyngitis [Unknown]
  - Osteoarthritis [Unknown]
  - Trigeminal neuralgia [Unknown]
  - Cough [Unknown]
  - Creatinine renal clearance decreased [Unknown]
  - Melaena [Unknown]
  - Urine output increased [Unknown]
  - Blood urea increased [Unknown]
  - Gout [Unknown]
  - Renal impairment [Unknown]
  - Upper gastrointestinal haemorrhage [Unknown]
  - Blood glucose increased [Unknown]
  - Pyrexia [Unknown]
